FAERS Safety Report 24072116 (Version 1)
Quarter: 2024Q3

REPORT INFORMATION
  Report Type: Spontaneous
  Country: US (occurrence: None)
  Receive Date: 20240709
  Receipt Date: 20240709
  Transmission Date: 20241017
  Serious: No
  Sender: Public
  Company Number: None

PATIENT
  Age: 91 Year
  Sex: Female

DRUGS (1)
  1. CAPECITABINE [Suspect]
     Active Substance: CAPECITABINE
     Indication: Colon cancer
     Dosage: 500 MG TWICE A DAY ORAL
     Route: 048
     Dates: start: 20240617, end: 20240621

REACTIONS (9)
  - Arthralgia [None]
  - Confusional state [None]
  - Muscle twitching [None]
  - Osteoarthritis [None]
  - Condition aggravated [None]
  - Insomnia [None]
  - Fall [None]
  - Myalgia [None]
  - Therapy interrupted [None]

NARRATIVE: CASE EVENT DATE: 20240626
